FAERS Safety Report 5066494-6 (Version None)
Quarter: 2006Q3

REPORT INFORMATION
  Report Type: 
  Country: None (occurrence: None)
  Receive Date: 20060717
  Receipt Date: 20040903
  Transmission Date: 20061208
  Serious: Yes (Life-Threatening, Hospitalization, Other)
  Sender: FDA-Public Use
  Company Number: 2004-09-0267

PATIENT
  Age: 57 Year
  Sex: Male
  Weight: 113 kg

DRUGS (5)
  1. INTEGRILIN [Suspect]
     Indication: PERCUTANEOUS CORONARY INTERVENTION
     Dosage: SEE IMAGE
     Route: 042
     Dates: start: 20040829, end: 20040829
  2. INTEGRILIN [Suspect]
     Indication: PERCUTANEOUS CORONARY INTERVENTION
     Dosage: SEE IMAGE
     Route: 042
     Dates: start: 20040829, end: 20040830
  3. LOVENOX [Suspect]
     Indication: PERCUTANEOUS CORONARY INTERVENTION
     Dosage: 55 MG INTRAVENOUS
     Route: 042
     Dates: start: 20040829, end: 20040829
  4. PLAVIX [Suspect]
     Dosage: 600 MG
     Dates: start: 20040829
  5. ATENOLOL [Concomitant]

REACTIONS (1)
  - THROMBOCYTOPENIA [None]
